FAERS Safety Report 7622498-8 (Version None)
Quarter: 2011Q3

REPORT INFORMATION
  Report Type: 
  Country: None (occurrence: None)
  Receive Date: 20110712
  Receipt Date: 20110711
  Transmission Date: 20111222
  Serious: Yes (Hospitalization)
  Sender: FDA-Public Use
  Company Number: 2008SP019958

PATIENT
  Age: 54 Year
  Sex: Female

DRUGS (4)
  1. INTERFERON BETA-1A [Suspect]
     Indication: HEPATIC CIRRHOSIS
  2. PROGRAF [Concomitant]
  3. INTRON A [Suspect]
     Indication: HEPATIC CIRRHOSIS
     Dosage: 3 MIU;TIW;IM
     Route: 030
     Dates: start: 20020712, end: 20021125
  4. REBETOL [Suspect]
     Indication: HEPATIC CIRRHOSIS
     Dosage: 600 MG;QD;PO
     Route: 048
     Dates: start: 20020712, end: 20021125

REACTIONS (2)
  - BILIARY ANASTOMOSIS COMPLICATION [None]
  - AUTOIMMUNE HEPATITIS [None]
